FAERS Safety Report 7246908-3 (Version None)
Quarter: 2011Q1

REPORT INFORMATION
  Report Type: 
  Country: None (occurrence: None)
  Receive Date: 20110127
  Receipt Date: 20110121
  Transmission Date: 20110831
  Serious: Yes (Hospitalization)
  Sender: FDA-Public Use
  Company Number: US-BRISTOL-MYERS SQUIBB COMPANY-14987200

PATIENT
  Age: 36 Year
  Sex: Male
  Weight: 147 kg

DRUGS (2)
  1. ABILIFY [Suspect]
     Indication: STRESS
     Route: 048
     Dates: start: 20080212
  2. ABILIFY [Suspect]
     Indication: ANXIETY
     Route: 048
     Dates: start: 20080212

REACTIONS (2)
  - DEEP VEIN THROMBOSIS [None]
  - PULMONARY EMBOLISM [None]
